FAERS Safety Report 15108283 (Version 2)
Quarter: 2018Q3

REPORT INFORMATION
  Report Type: Report from Study
  Country: None (occurrence: CA)
  Receive Date: 20180705
  Receipt Date: 20180730
  Transmission Date: 20181010
  Serious: Yes (Hospitalization)
  Sender: FDA-Public Use
  Company Number: CA-ABBVIE-18K-028-2408569-00

PATIENT
  Age: 24 Year
  Sex: Female
  Weight: 42 kg

DRUGS (1)
  1. HUMIRA [Suspect]
     Active Substance: ADALIMUMAB
     Indication: CROHN^S DISEASE
     Route: 058
     Dates: start: 20150911, end: 201804

REACTIONS (2)
  - Cardiomyopathy [Unknown]
  - Palpitations [Unknown]

NARRATIVE: CASE EVENT DATE: 201804
